FAERS Safety Report 20711371 (Version 1)
Quarter: 2022Q2

REPORT INFORMATION
  Report Type: Spontaneous
  Country: IL (occurrence: IL)
  Receive Date: 20220414
  Receipt Date: 20220414
  Transmission Date: 20220721
  Serious: Yes (Hospitalization, Other)
  Sender: FDA-Public Use
  Company Number: IL-LOTUS-2022-LOTUS-048724

PATIENT
  Age: 75 Year
  Sex: Male

DRUGS (1)
  1. LEVETIRACETAM [Suspect]
     Active Substance: LEVETIRACETAM
     Indication: Generalised tonic-clonic seizure

REACTIONS (6)
  - Cognitive disorder [Recovering/Resolving]
  - Cerebral amyloid angiopathy [Recovering/Resolving]
  - Depressed level of consciousness [Recovering/Resolving]
  - Gait inability [Recovering/Resolving]
  - Cerebral atrophy [Recovering/Resolving]
  - General physical health deterioration [Recovering/Resolving]
